FAERS Safety Report 8463616-1 (Version None)
Quarter: 2012Q2

REPORT INFORMATION
  Report Type: 
  Country: None (occurrence: None)
  Receive Date: 20120625
  Receipt Date: 20120614
  Transmission Date: 20120825
  Serious: Yes (Hospitalization)
  Sender: FDA-Public Use
  Company Number: FR-PFIZER INC-2012099461

PATIENT
  Age: 91 Year
  Sex: Male

DRUGS (7)
  1. CLARITHROMYCIN [Suspect]
     Indication: PEPTIC ULCER
     Dosage: UNK
     Route: 048
     Dates: start: 20120307
  2. AMLODIPINE BESYLATE [Concomitant]
     Dosage: 10 UNK, UNK
  3. IRBESARTAN [Concomitant]
     Dosage: 75 MG, UNK
  4. POLYETHYLENE GLYCOL [Concomitant]
     Dosage: UNK
  5. AMOXICILLIN [Suspect]
     Indication: PEPTIC ULCER
     Dosage: UNK
     Route: 048
     Dates: start: 20120307
  6. FLAGYL [Suspect]
     Indication: PEPTIC ULCER
     Dosage: UNK
     Route: 048
     Dates: start: 20120307, end: 20120309
  7. PANTOPRAZOLE [Suspect]
     Indication: PEPTIC ULCER
     Dosage: UNK
     Route: 048
     Dates: start: 20120307

REACTIONS (1)
  - ORGANISING PNEUMONIA [None]
